FAERS Safety Report 24861372 (Version 1)
Quarter: 2025Q1

REPORT INFORMATION
  Report Type: Other
  Country: GB (occurrence: GB)
  Receive Date: 20250120
  Receipt Date: 20250120
  Transmission Date: 20250409
  Serious: Yes (Other)
  Sender: STRIDES
  Company Number: None

PATIENT
  Age: 73 Year
  Sex: Male

DRUGS (3)
  1. PREDNISOLONE [Suspect]
     Active Substance: PREDNISOLONE
     Indication: Adverse drug reaction
     Route: 065
     Dates: start: 20241011
  2. AMOXICILLIN\CLAVULANATE POTASSIUM [Suspect]
     Active Substance: AMOXICILLIN\CLAVULANATE POTASSIUM
     Indication: Adverse drug reaction
     Route: 065
     Dates: start: 20240921, end: 20240927
  3. LANSOPRAZOLE [Suspect]
     Active Substance: LANSOPRAZOLE
     Indication: Tonsillar hypertrophy
     Route: 065
     Dates: start: 20241012, end: 20241015

REACTIONS (11)
  - Joint swelling [Recovering/Resolving]
  - Discoloured vomit [Recovered/Resolved]
  - Eye pain [Recovering/Resolving]
  - Constipation [Recovered/Resolved]
  - Skin discolouration [Recovered/Resolved]
  - Pallor [Recovering/Resolving]
  - Diarrhoea [Recovered/Resolved]
  - Lethargy [Recovered/Resolved]
  - Gastrointestinal pain [Recovered/Resolved]
  - Confusional state [Recovered/Resolved]
  - Headache [Recovered/Resolved]

NARRATIVE: CASE EVENT DATE: 20240922
